FAERS Safety Report 8120947-2 (Version None)
Quarter: 2012Q1

REPORT INFORMATION
  Report Type: 
  Country: None (occurrence: None)
  Receive Date: 20120208
  Receipt Date: 20120202
  Transmission Date: 20120608
  Serious: Yes (Life-Threatening, Hospitalization)
  Sender: FDA-Public Use
  Company Number: US-BAYER-2011-067687

PATIENT
  Age: 21 Year
  Sex: Female
  Weight: 41.723 kg

DRUGS (5)
  1. YAZ [Suspect]
     Dosage: UNK
     Dates: start: 20080501, end: 20090801
  2. ATENOLOL [Concomitant]
     Dosage: UNK
     Dates: start: 20081101, end: 20100301
  3. SYMBICORT [Concomitant]
     Dosage: UNK
     Dates: start: 20081101, end: 20100301
  4. XYZAL [Concomitant]
     Dosage: 5 MG, UNK
     Dates: start: 20081101, end: 20100301
  5. ZANTAC [Concomitant]
     Dosage: UNK
     Dates: start: 20081101, end: 20100301

REACTIONS (8)
  - INJURY [None]
  - ANXIETY [None]
  - SUPRAVENTRICULAR TACHYCARDIA [None]
  - EMOTIONAL DISTRESS [None]
  - ANHEDONIA [None]
  - PAIN [None]
  - FEAR OF DISEASE [None]
  - PALPITATIONS [None]
